APPROVED DRUG PRODUCT: OXTELLAR XR
Active Ingredient: OXCARBAZEPINE
Strength: 300MG
Dosage Form/Route: TABLET, EXTENDED RELEASE;ORAL
Application: N202810 | Product #002 | TE Code: AB
Applicant: SUPERNUS PHARMACEUTICALS INC
Approved: Oct 19, 2012 | RLD: Yes | RS: No | Type: RX

PATENTS:
Patent 10220042 | Expires: Apr 13, 2027
Patent 9119791 | Expires: Apr 13, 2027
Patent 7910131 | Expires: Apr 13, 2027
Patent 11166960 | Expires: Apr 13, 2027
Patent 9855278 | Expires: Apr 13, 2027
Patent 7722898 | Expires: Apr 13, 2027
Patent 9370525 | Expires: Apr 13, 2027
Patent 8821930 | Expires: Apr 13, 2027
Patent 8617600 | Expires: Apr 13, 2027
Patent 11896599 | Expires: Apr 13, 2027
Patent 9351975 | Expires: Apr 13, 2027